FAERS Safety Report 7723809-5 (Version None)
Quarter: 2011Q3

REPORT INFORMATION
  Report Type: 
  Country: None (occurrence: None)
  Receive Date: 20110901
  Receipt Date: 20110818
  Transmission Date: 20111222
  Serious: Yes (Hospitalization, Other)
  Sender: FDA-Public Use
  Company Number: PHHY2011DE70642

PATIENT
  Sex: Female
  Weight: 120 kg

DRUGS (15)
  1. MOXONIDINE [Concomitant]
     Dosage: UNK UKN, UNK
  2. LYRICA [Concomitant]
     Dosage: 1 DF, BID
  3. CLONIDINE [Concomitant]
     Indication: HYPERTENSION
     Dosage: 300 UG, UNK
     Route: 048
  4. ANGIOTENSIN CONVERTING ENZYME BLOCKERS [Concomitant]
     Dosage: UNK UKN, UNK
  5. MARCUMAR [Concomitant]
     Dosage: UNK UKN, UNK
     Dates: start: 20110623
  6. PROTAPHANE [Concomitant]
     Indication: TYPE 1 DIABETES MELLITUS
     Dosage: UNK UKN, UNK
  7. HEPARIN [Concomitant]
     Dosage: 1 DF, BID
  8. CARMEN [Concomitant]
     Dosage: 20 MG, UNK
     Route: 048
  9. INSUMAN RAPID [Concomitant]
     Dosage: 70 IU, UNK
  10. RASILEZ [Suspect]
     Indication: HYPERTENSION
     Dosage: 1 DF, QD
     Route: 048
     Dates: start: 20101207, end: 20110610
  11. METOPROLOL TARTRATE [Concomitant]
     Indication: TACHYCARDIA
     Dosage: 1 DF, BID
  12. METOPROLOL TARTRATE [Concomitant]
     Indication: MIGRAINE
     Dosage: 1 DF, QD
  13. INSUMAN BASAL [Concomitant]
     Dosage: 62 IU, UNK
  14. NOVORAPID [Concomitant]
     Indication: TYPE 1 DIABETES MELLITUS
     Dosage: UNK UKN, UNK
  15. FUROSEMIDE [Concomitant]
     Dosage: 1 DF, BID

REACTIONS (38)
  - BLOOD UREA INCREASED [None]
  - PULMONARY ARTERIAL WEDGE PRESSURE DECREASED [None]
  - ASTHENIA [None]
  - DYSURIA [None]
  - CARDIOMYOPATHY [None]
  - PROTHROMBIN TIME PROLONGED [None]
  - HYPERGLYCAEMIA [None]
  - OBESITY [None]
  - URINARY TRACT DISORDER [None]
  - HAEMATOCRIT DECREASED [None]
  - TACHYCARDIA [None]
  - BRADYCARDIA [None]
  - SLEEP APNOEA SYNDROME [None]
  - HAEMOGLOBIN DECREASED [None]
  - ATRIAL FIBRILLATION [None]
  - FLANK PAIN [None]
  - BLOOD PRESSURE INCREASED [None]
  - C-REACTIVE PROTEIN INCREASED [None]
  - PULMONARY ARTERIAL HYPERTENSION [None]
  - SINUS ARREST [None]
  - RHYTHM IDIOVENTRICULAR [None]
  - DIABETES MELLITUS [None]
  - RENAL ARTERY STENOSIS [None]
  - RENAL FAILURE ACUTE [None]
  - HYPERKALAEMIA [None]
  - RED BLOOD CELL COUNT DECREASED [None]
  - PULMONARY EMBOLISM [None]
  - BONE PAIN [None]
  - GLOMERULAR FILTRATION RATE DECREASED [None]
  - WHITE BLOOD CELL COUNT INCREASED [None]
  - ACTIVATED PARTIAL THROMBOPLASTIN TIME PROLONGED [None]
  - VENOUS THROMBOSIS LIMB [None]
  - OSTEOARTHRITIS [None]
  - BLOOD CREATININE INCREASED [None]
  - SICK SINUS SYNDROME [None]
  - MUSCULAR WEAKNESS [None]
  - HYPERLIPIDAEMIA [None]
  - THYROID DISORDER [None]
